FAERS Safety Report 5179949-0 (Version None)
Quarter: 2006Q4

REPORT INFORMATION
  Report Type: 
  Country: None (occurrence: None)
  Receive Date: 20061212
  Receipt Date: 20061127
  Transmission Date: 20070319
  Serious: Yes (Death)
  Sender: FDA-Public Use
  Company Number: S06-CAN-05115-01

PATIENT
  Age: 74 Year
  Sex: Male

DRUGS (2)
  1. CELEXA [Suspect]
     Dosage: 50 MG QD PO
     Route: 048
  2. REMERON [Suspect]
     Dosage: 60 MG QD PO
     Route: 048

REACTIONS (1)
  - COMPLETED SUICIDE [None]
